FAERS Safety Report 19955340 (Version 7)
Quarter: 2024Q4

REPORT INFORMATION
  Report Type: Spontaneous
  Country: US (occurrence: US)
  Receive Date: 20211014
  Receipt Date: 20241028
  Transmission Date: 20250115
  Serious: Yes (Other)
  Sender: PFIZER
  Company Number: US-PFIZER INC-2021410980

PATIENT
  Age: 78 Year
  Sex: Female

DRUGS (12)
  1. XELJANZ XR [Suspect]
     Active Substance: TOFACITINIB CITRATE
     Dosage: 11 MG, 1X/DAY
     Route: 048
  2. LEVOTHYROXINE [Concomitant]
     Active Substance: LEVOTHYROXINE
  3. HYDROCHLOROTHIAZIDE [Concomitant]
     Active Substance: HYDROCHLOROTHIAZIDE
  4. MIRTAZAPINE [Concomitant]
     Active Substance: MIRTAZAPINE
  5. LISINOPRIL [Concomitant]
     Active Substance: LISINOPRIL
  6. CROMOLYN SODIUM [Concomitant]
     Active Substance: CROMOLYN SODIUM
  7. LORAZEPAM [Concomitant]
     Active Substance: LORAZEPAM
  8. ATORVASTATIN [Concomitant]
     Active Substance: ATORVASTATIN
  9. FOLIC ACID [Concomitant]
     Active Substance: FOLIC ACID
  10. CARVEDILOL [Concomitant]
     Active Substance: CARVEDILOL
  11. VITAMIN D3 [Concomitant]
     Active Substance: CHOLECALCIFEROL
  12. OMEPRAZOLE [Concomitant]
     Active Substance: OMEPRAZOLE

REACTIONS (6)
  - Neoplasm malignant [Unknown]
  - Joint injury [Unknown]
  - Limb injury [Unknown]
  - Joint range of motion decreased [Unknown]
  - Pain in extremity [Unknown]
  - Pain [Unknown]
